FAERS Safety Report 14267248 (Version 1)
Quarter: 2017Q4

REPORT INFORMATION
  Report Type: Spontaneous
  Country: US (occurrence: US)
  Receive Date: 20171208
  Receipt Date: 20171208
  Transmission Date: 20180321
  Serious: Yes (Other)
  Sender: FDA-Public Use
  Company Number: None

PATIENT
  Age: 75 Year
  Sex: Female
  Weight: 75.3 kg

DRUGS (23)
  1. VITAMIN D3 [Concomitant]
     Active Substance: CHOLECALCIFEROL
  2. SPIRIVA [Concomitant]
     Active Substance: TIOTROPIUM BROMIDE MONOHYDRATE
  3. POTASSIUM [Concomitant]
     Active Substance: POTASSIUM
  4. LOVAZA [Concomitant]
     Active Substance: OMEGA-3-ACID ETHYL ESTERS
  5. ADAPALENE. [Concomitant]
     Active Substance: ADAPALENE
  6. CLOTRIMAZOLE. [Concomitant]
     Active Substance: CLOTRIMAZOLE
  7. XOPEXEN [Concomitant]
  8. XALATAN [Concomitant]
     Active Substance: LATANOPROST
  9. BETAMETHASONE. [Concomitant]
     Active Substance: BETAMETHASONE
  10. GLEEVEC [Suspect]
     Active Substance: IMATINIB MESYLATE
     Indication: PHILADELPHIA CHROMOSOME POSITIVE
     Route: 048
     Dates: start: 20171116, end: 20171205
  11. BONIVA [Concomitant]
     Active Substance: IBANDRONATE SODIUM
  12. FUROSEMIDE. [Concomitant]
     Active Substance: FUROSEMIDE
  13. VENTOLIN [Concomitant]
     Active Substance: ALBUTEROL SULFATE
  14. POTASSIUM CHLORIDE. [Concomitant]
     Active Substance: POTASSIUM CHLORIDE
  15. AMBIEN [Concomitant]
     Active Substance: ZOLPIDEM TARTRATE
  16. PENICILLIN [Concomitant]
     Active Substance: PENICILLIN
  17. CENTRUM [Concomitant]
     Active Substance: VITAMINS
  18. BREO ELLIPTA [Concomitant]
     Active Substance: FLUTICASONE FUROATE\VILANTEROL TRIFENATATE
  19. TOPROL XL [Concomitant]
     Active Substance: METOPROLOL SUCCINATE
  20. HANDIHALER [Concomitant]
  21. DIOVAN [Concomitant]
     Active Substance: VALSARTAN
  22. ASPIRIN. [Concomitant]
     Active Substance: ASPIRIN
  23. BEPREVE [Concomitant]
     Active Substance: BEPOTASTINE BESILATE

REACTIONS (3)
  - Nausea [None]
  - Asthenia [None]
  - Vomiting [None]

NARRATIVE: CASE EVENT DATE: 20171205
